FAERS Safety Report 4438418-3 (Version None)
Quarter: 2004Q3

REPORT INFORMATION
  Report Type: 
  Country: None (occurrence: None)
  Receive Date: 20040831
  Receipt Date: 20040830
  Transmission Date: 20050211
  Serious: Yes (Hospitalization, Other)
  Sender: FDA-Public Use
  Company Number: PHNU2004DE03043

PATIENT
  Sex: Female

DRUGS (3)
  1. CLOZARIL [Suspect]
     Dosage: 500MG/DAY
  2. BETADORM [Suspect]
     Dosage: 12 DF, ONCE/SINGLE
  3. RISPERDAL [Concomitant]

REACTIONS (2)
  - GRAND MAL CONVULSION [None]
  - OVERDOSE [None]
